FAERS Safety Report 24197953 (Version 1)
Quarter: 2024Q3

REPORT INFORMATION
  Report Type: Spontaneous
  Country: CN (occurrence: CN)
  Receive Date: 20240812
  Receipt Date: 20240812
  Transmission Date: 20241017
  Serious: Yes (Hospitalization, Other)
  Sender: JOHNSON AND JOHNSON
  Company Number: CN-JNJFOC-20240816935

PATIENT

DRUGS (11)
  1. MACITENTAN [Suspect]
     Active Substance: MACITENTAN
     Indication: Pulmonary arterial hypertension
     Route: 048
  2. SELEXIPAG [Concomitant]
     Active Substance: SELEXIPAG
  3. ILOPROST [Concomitant]
     Active Substance: ILOPROST
  4. TREPROSTINIL SODIUM [Concomitant]
     Active Substance: TREPROSTINIL SODIUM
  5. BERAPROST SODIUM [Concomitant]
     Active Substance: BERAPROST SODIUM
  6. SILDENAFIL [Concomitant]
     Active Substance: SILDENAFIL
  7. SILDENAFIL CITRATE [Concomitant]
     Active Substance: SILDENAFIL CITRATE
  8. VARDENAFIL [Concomitant]
     Active Substance: VARDENAFIL HYDROCHLORIDE
  9. BERAPROST [Concomitant]
     Active Substance: BERAPROST
  10. TREPROSTINIL [Concomitant]
     Active Substance: TREPROSTINIL
  11. EPOPROSTENOL [Concomitant]
     Active Substance: EPOPROSTENOL

REACTIONS (9)
  - Pulmonary arterial hypertension [Unknown]
  - Cardiac failure [Unknown]
  - Haemoptysis [Unknown]
  - Aspartate aminotransferase increased [Unknown]
  - Alanine aminotransferase increased [Unknown]
  - Blood bilirubin increased [Unknown]
  - Orthostatic hypotension [Unknown]
  - Anaemia [Unknown]
  - Hypotension [Unknown]
